FAERS Safety Report 20975385 (Version 4)
Quarter: 2023Q4

REPORT INFORMATION
  Report Type: Spontaneous
  Country: FI (occurrence: FI)
  Receive Date: 20220617
  Receipt Date: 20231215
  Transmission Date: 20240110
  Serious: Yes (Hospitalization, Other)
  Sender: FDA-Public Use
  Company Number: FI-Orion Corporation ORION PHARMA-ATOR2022-0009

PATIENT
  Age: 84 Year
  Sex: Female

DRUGS (8)
  1. APIXABAN [Interacting]
     Active Substance: APIXABAN
     Indication: Cerebrovascular accident prophylaxis
     Dosage: 2.5 MG, 1 DOSE 12 HOURS
     Route: 065
  2. APIXABAN [Interacting]
     Active Substance: APIXABAN
     Dosage: 5 MILLIGRAM, QD, 2.5 MG, 1 DOSE 12 HOURS
     Route: 065
  3. BISOPROLOL [Suspect]
     Active Substance: BISOPROLOL\BISOPROLOL FUMARATE
     Indication: Product used for unknown indication
     Dosage: 5 MG, BID (1 DOSE 12 HOURS)
     Route: 065
  4. BISOPROLOL [Suspect]
     Active Substance: BISOPROLOL\BISOPROLOL FUMARATE
     Dosage: 10 MILLIGRAM, QD,(5 MG, 1 DOSE) 12 HOURS
     Route: 065
  5. ATORVASTATIN [Suspect]
     Active Substance: ATORVASTATIN
     Indication: Product used for unknown indication
     Dosage: 40 MILLIGRAM, QD (40 MG, 1X/DAY)
     Route: 065
  6. TRIMETHOPRIM [Interacting]
     Active Substance: TRIMETHOPRIM
     Indication: Urinary tract infection
     Dosage: UNK
     Route: 065
  7. TRIMETHOPRIM [Interacting]
     Active Substance: TRIMETHOPRIM
     Indication: Confusional state
     Dosage: UNK
     Route: 065
  8. DIGOXIN [Interacting]
     Active Substance: DIGOXIN
     Indication: Product used for unknown indication
     Dosage: 0.25 MG, QD (0.25 MG, 1X/DAY)
     Route: 065

REACTIONS (12)
  - Dyspnoea [Recovered/Resolved]
  - Neurological symptom [Recovered/Resolved]
  - Skin laceration [Recovered/Resolved]
  - Malaise [Recovered/Resolved]
  - Circulatory collapse [Recovered/Resolved]
  - Fatigue [Recovered/Resolved]
  - General physical health deterioration [Recovered/Resolved]
  - Asthenia [Recovered/Resolved]
  - Confusional state [Recovered/Resolved]
  - Cardioactive drug level increased [Recovered/Resolved]
  - Nausea [Recovered/Resolved]
  - Potentiating drug interaction [Unknown]
